FAERS Safety Report 9150016 (Version 1)
Quarter: 2013Q1

REPORT INFORMATION
  Report Type: Spontaneous
  Country: US (occurrence: None)
  Receive Date: 20130129
  Receipt Date: 20130129
  Transmission Date: 20140127
  Serious: Yes (Hospitalization)
  Sender: FDA-Public Use
  Company Number: DAV-AE-MTX-13-09

PATIENT
  Age: 54 Year
  Sex: Female
  Weight: 80.5 kg

DRUGS (8)
  1. METHOTREXATE [Suspect]
     Indication: RHEUMATOID ARTHRITIS
     Dates: start: 20120222, end: 20121006
  2. RITUXIMAB [Suspect]
     Indication: RHEUMATOID ARTHRITIS
     Dosage: BLINDED, INFO WITHHELD
     Dates: start: 20120329, end: 20121129
  3. LEVOTHYROXINE (LEVOTHYROXINE) [Concomitant]
  4. FOLIC ACID (FOLIC ACID) [Concomitant]
  5. DEXILANT (DEXLANSOPRAZOLE) [Concomitant]
  6. LORATIDINE [Concomitant]
  7. MULTIVITAMINS W/MINERALS (MINERALS NOS. VITAMINS NOS) [Concomitant]
  8. PREDNISONE [Suspect]
     Indication: RHEUMATOID ARTHRITIS
     Route: 048
     Dates: start: 20120428

REACTIONS (1)
  - Arthritis bacterial [None]
